FAERS Safety Report 10420066 (Version 1)
Quarter: 2014Q3

REPORT INFORMATION
  Report Type: Spontaneous
  Country: AU (occurrence: AU)
  Receive Date: 20140829
  Receipt Date: 20140829
  Transmission Date: 20150326
  Serious: No
  Sender: FDA-Public Use
  Company Number: AU-009507513-1408AUS016490

PATIENT
  Sex: Female

DRUGS (4)
  1. PERIACTIN [Concomitant]
     Active Substance: CYPROHEPTADINE HYDROCHLORIDE
     Dosage: 8 MILLIGRAM, DAILY
  2. XANAX [Suspect]
     Active Substance: ALPRAZOLAM
     Dosage: 2.5 MILLIGRAM, DAILY
  3. QUETIAPINE FUMARATE. [Suspect]
     Active Substance: QUETIAPINE FUMARATE
     Dosage: 200 MILLIGRAM, DAILY
  4. MIRTAZAPINE GA [Suspect]
     Active Substance: MIRTAZAPINE
     Dosage: UNK UNK, DAILY
     Route: 048

REACTIONS (1)
  - Maternal exposure during pregnancy [Recovered/Resolved]
